FAERS Safety Report 9377281 (Version 1)
Quarter: 2013Q3

REPORT INFORMATION
  Report Type: Report from Study
  Country: AR (occurrence: AR)
  Receive Date: 20130701
  Receipt Date: 20130701
  Transmission Date: 20140515
  Serious: Yes (Death)
  Sender: FDA-Public Use
  Company Number: AR-ROCHE-1243298

PATIENT
  Sex: Male
  Weight: 90 kg

DRUGS (4)
  1. MABTHERA [Suspect]
     Indication: B-CELL LYMPHOMA
     Dosage: DATE OF LAST CYCLE ADMINISTERED :30/JUL/2012
     Route: 065
     Dates: start: 20120730
  2. METHYLPREDNISOLONE [Concomitant]
     Indication: B-CELL LYMPHOMA
  3. CYTARABINE [Concomitant]
     Indication: B-CELL LYMPHOMA
  4. CISPLATIN [Concomitant]
     Indication: B-CELL LYMPHOMA

REACTIONS (1)
  - Death [Fatal]
